FAERS Safety Report 16706783 (Version 1)
Quarter: 2019Q3

REPORT INFORMATION
  Report Type: Spontaneous
  Country: US (occurrence: US)
  Receive Date: 20190815
  Receipt Date: 20190815
  Transmission Date: 20191004
  Serious: No
  Sender: FDA-Public Use
  Company Number: US-CHIESI USA, INC.-US-2019CHI000175

PATIENT

DRUGS (2)
  1. KENGREAL [Suspect]
     Active Substance: CANGRELOR
     Indication: INTRACARDIAC THROMBUS
     Dosage: UNK
     Route: 022
  2. KENGREAL [Suspect]
     Active Substance: CANGRELOR
     Indication: OFF LABEL USE

REACTIONS (2)
  - Off label use [Unknown]
  - Incorrect route of product administration [Unknown]
